FAERS Safety Report 6878331-5 (Version None)
Quarter: 2010Q3

REPORT INFORMATION
  Report Type: 
  Country: None (occurrence: None)
  Receive Date: 20100728
  Receipt Date: 20100719
  Transmission Date: 20110219
  Serious: Yes (Other)
  Sender: FDA-Public Use
  Company Number: US-JNJFOC-20100604734

PATIENT
  Age: 14 Year
  Sex: Female

DRUGS (3)
  1. TOPAMAX [Suspect]
     Indication: CONVULSION
     Dosage: WHITE TAB, NDC 00450639-65
     Route: 048
  2. TOPAMAX [Suspect]
     Dosage: CREAM TABS, NDC 50458-639-65
     Route: 048
  3. TOPAMAX [Suspect]
     Dosage: WHITE TABLETS
     Route: 048

REACTIONS (4)
  - ASTHENIA [None]
  - CONVULSION [None]
  - GENERAL PHYSICAL HEALTH DETERIORATION [None]
  - HYPOTONIA [None]
